FAERS Safety Report 8277324-3 (Version None)
Quarter: 2012Q2

REPORT INFORMATION
  Report Type: 
  Country: None (occurrence: None)
  Receive Date: 20120412
  Receipt Date: 20120403
  Transmission Date: 20120825
  Serious: Yes (Hospitalization)
  Sender: FDA-Public Use
  Company Number: JP-GLAXOSMITHKLINE-B0793947A

PATIENT
  Age: 37 Year
  Sex: Female

DRUGS (6)
  1. LITHIUM CARBONATE [Concomitant]
     Indication: BIPOLAR DISORDER
     Route: 048
     Dates: end: 20120323
  2. LAMICTAL [Suspect]
     Route: 048
     Dates: start: 20120324, end: 20120326
  3. HIRNAMIN [Concomitant]
     Route: 048
  4. LAMICTAL [Suspect]
     Indication: BIPOLAR DISORDER
     Route: 048
     Dates: start: 20111107, end: 20111121
  5. LAMICTAL [Suspect]
     Route: 048
     Dates: start: 20111122
  6. LITHIUM CARBONATE [Concomitant]
     Route: 048
     Dates: start: 20120324, end: 20120326

REACTIONS (8)
  - PYREXIA [None]
  - DRUG RASH WITH EOSINOPHILIA AND SYSTEMIC SYMPTOMS [None]
  - RASH [None]
  - INFLAMMATION [None]
  - HEPATIC FUNCTION ABNORMAL [None]
  - MALAISE [None]
  - PRURITUS [None]
  - WHITE BLOOD CELL COUNT INCREASED [None]
